FAERS Safety Report 8996925 (Version 1)
Quarter: 2012Q4

REPORT INFORMATION
  Report Type: Spontaneous
  Country: AU (occurrence: None)
  Receive Date: 20121221
  Receipt Date: 20121221
  Transmission Date: 20130627
  Serious: Yes (Hospitalization, Other)
  Sender: FDA-Public Use
  Company Number: 2012000259

PATIENT
  Age: 84 Year
  Sex: Female

DRUGS (6)
  1. ACEON (PERINDOPRIL ERBUMINE) TABLET [Suspect]
     Indication: LEFT VENTRICULAR DYSFUNCTION
     Dates: start: 20120919, end: 20120920
  2. ACEON (PERINDOPRIL ERBUMINE) TABLET [Suspect]
     Indication: LEFT VENTRICULAR DYSFUNCTION
     Route: 048
     Dates: start: 20121105
  3. THYROXINE (LEVOTHYROXINE SODIUM) [Concomitant]
  4. MAGNESIUM ASPARTATE (MAGNESIUM ASPARTATE) [Concomitant]
  5. FRUSEMID (FUROSEMIDE SODIUM) [Concomitant]
  6. ROSUVASTATIN (ROSUVASTATIN) [Concomitant]

REACTIONS (3)
  - Pain in extremity [None]
  - Blood potassium increased [None]
  - Troponin increased [None]
